FAERS Safety Report 8361588-1 (Version None)
Quarter: 2012Q2

REPORT INFORMATION
  Report Type: 
  Country: None (occurrence: None)
  Receive Date: 20120515
  Receipt Date: 20120508
  Transmission Date: 20120825
  Serious: Yes (Other)
  Sender: FDA-Public Use
  Company Number: US-PFIZER INC-2012068477

PATIENT
  Sex: Male

DRUGS (24)
  1. POTASSIUM CHLORIDE [Concomitant]
     Dosage: 40 MEQ, 3X/DAY
     Route: 048
  2. MAGNESIUM OXIDE [Concomitant]
     Dosage: 400 MG, 2X/DAY (TAKE 1 TABLET BY MOUTH TWICE DAILY)
     Route: 048
  3. LISINOPRIL [Concomitant]
     Dosage: 10 MG, (1 TAB ORAL DAILY)
     Route: 048
  4. FLEXERIL [Concomitant]
     Indication: MUSCLE SPASMS
  5. LIRAGLUTIDE (NN2211) [Concomitant]
     Dosage: 18 MG/3 ML, (INJECT 0.6 MG SUBCUTANEOUSLY ONCE DAILY)
     Route: 058
  6. HYDROCHLOROTHIAZIDE [Concomitant]
     Dosage: 25 MG, 1X/DAY (TAKE 1 TABLET BY MOUTH ONCE DAILY)
     Route: 048
  7. LASIX [Concomitant]
     Dosage: 60 MG, 2X/DAY (TAKE 3 TABLETS BY MOUTH TWICE DAILY)
     Route: 048
  8. WARFARIN [Concomitant]
     Dosage: UNK, (DOSE PER INR)
  9. ALBUTEROL [Concomitant]
     Indication: DYSPNOEA
  10. VIAGRA [Suspect]
     Indication: ERECTILE DYSFUNCTION
     Dosage: 100 MG, (TAKE 1 TABLET BY MOUTH AS NEEDE. 30-60 MINUTES BEFORE SEXUAL INTERCOURSE)
     Route: 048
     Dates: start: 20120227
  11. COREG [Concomitant]
     Dosage: 12.5 MG, (TAKE 1 TABLET BY MOUTH TWICE DAILY WITH MEALS)
     Route: 048
  12. NEURONTIN [Concomitant]
     Dosage: 300 MG, 2X/DAY (TAKE BY MOUTH. TAKE ONE (1) TABLET TWO(2) TIMES DAILY)
     Route: 048
  13. AMMONIUM LACTATE [Concomitant]
     Dosage: 12 %, (APPLY TO FEET TWICE DAILY)
     Route: 061
  14. PREDNISONE [Concomitant]
     Dosage: 20 MG, 1X/DAY (TAKE 1 TABLET BY MOUTH ONCE DAILY)
     Route: 048
  15. FLEXERIL [Concomitant]
     Indication: PAIN
     Dosage: 5 MG, (TAKE 1 TABLET BY MOUTH TWICE DAILY AS NEEDED )
     Route: 048
  16. URSODIOL [Concomitant]
     Dosage: 300 MG, 2X/DAY (TAKE 1 CAPSULE BY MOUTH TWICE DAILY)
     Route: 048
  17. COREG [Concomitant]
     Dosage: 6.25 MG, (TAKE ONE TABLET BY MOUTH TWICE DAILY WITH MEALS)
     Route: 048
  18. CEFTIN [Concomitant]
     Dosage: 250 MG, 2X/DAY (TAKE 1 TABLET BY MOUTH TWICE DAILY)
     Route: 048
  19. ROBAXIN [Concomitant]
     Dosage: 750 MG, 3X/DAY (TAKE 1 TABLET BY MOUTH THREE TIMES DAILY)
     Route: 048
  20. ZOCOR [Concomitant]
     Dosage: 40 MG, (TAKE 1 TABLET BY MOUTH DAILY AT BEDTIME)
     Route: 048
  21. ALLOPURINOL [Concomitant]
     Dosage: 100 MG, 1X/DAY (TAKE 1 TABLET BY MOUTH ONCE DAILY)
     Route: 048
  22. OXYCODONE [Concomitant]
     Indication: PAIN
     Dosage: 5 MG, (TAKE 1-2 TABLETS BY MOUTH EVERY 6 HOURS AS NEEDED)
     Route: 048
  23. WARFARIN [Concomitant]
     Dosage: 5 MG, (TAKE 1.5 TABLETS BY MOUTH ONCE DAILY)
     Route: 048
  24. ALBUTEROL [Concomitant]
     Indication: WHEEZING
     Dosage: 90 MCG/ACTUATION, (INHALE ONE(1) - TWO(2) PUFFS FOUR(4) TIMES A DAY AS NEEDED)

REACTIONS (1)
  - SUICIDAL BEHAVIOUR [None]
